FAERS Safety Report 9155880 (Version 1)
Quarter: 2013Q1

REPORT INFORMATION
  Report Type: Spontaneous
  Country: IN (occurrence: IN)
  Receive Date: 20130311
  Receipt Date: 20130311
  Transmission Date: 20140127
  Serious: Yes (Life-Threatening, Hospitalization)
  Sender: FDA-Public Use
  Company Number: IN-MYLANLABS-2013S1004595

PATIENT
  Age: 8 Year
  Sex: Male
  Weight: 25 kg

DRUGS (2)
  1. PHENYTOIN [Suspect]
     Indication: GRAND MAL CONVULSION
     Dosage: LOADING DOSE, FOLLOWED BY IV PHENYTOIN (300 MG/D) ONCE DAILY FOR NEXT 15 DAYS
     Route: 042
  2. DIAZEPAM [Concomitant]
     Indication: GRAND MAL CONVULSION
     Route: 042

REACTIONS (2)
  - Macroglossia [Recovering/Resolving]
  - Superinfection [Unknown]
